FAERS Safety Report 8789984 (Version 4)
Quarter: 2013Q2

REPORT INFORMATION
  Report Type: Spontaneous
  Country: JP (occurrence: JP)
  Receive Date: 20120917
  Receipt Date: 20130412
  Transmission Date: 20140414
  Serious: Yes (Other)
  Sender: FDA-Public Use
  Company Number: JP-NOVOPROD-359335

PATIENT
  Age: 71 Year
  Sex: Male

DRUGS (16)
  1. SUREPOST [Suspect]
     Indication: TYPE 2 DIABETES MELLITUS
     Dosage: 0.75 MG, QD
     Route: 048
     Dates: start: 20120725, end: 20120806
  2. SUREPOST [Suspect]
     Dosage: 0.75 MG, QD
     Route: 048
     Dates: start: 20120815, end: 20120827
  3. LIPITOR [Concomitant]
  4. PLAVIX [Concomitant]
  5. DEPAKENE-R [Concomitant]
  6. CARBAMAZEPINE [Concomitant]
  7. SEIBULE [Concomitant]
     Dosage: UNK
     Route: 048
     Dates: start: 20120802, end: 20120806
  8. SEIBULE [Concomitant]
     Dosage: UNK
     Dates: start: 20120815, end: 20120822
  9. PURSENNID                          /00571902/ [Concomitant]
  10. ALOSENN                            /00476901/ [Concomitant]
  11. DIART [Concomitant]
  12. E KEPPRA [Concomitant]
     Dosage: UNK
     Dates: start: 20120719
  13. GLACTIV [Concomitant]
     Dosage: 50 MG, QD
     Dates: start: 20120721, end: 20120725
  14. ZOSYN [Concomitant]
  15. SLOW-K [Concomitant]
  16. LIASOPHIN [Concomitant]

REACTIONS (2)
  - Thrombocytopenia [Recovered/Resolved]
  - Urinary tract infection [Unknown]
